FAERS Safety Report 17301748 (Version 10)
Quarter: 2020Q3

REPORT INFORMATION
  Report Type: Report from Study
  Country: CN (occurrence: CN)
  Receive Date: 20200122
  Receipt Date: 20200722
  Transmission Date: 20201102
  Serious: Yes (Death, Life-Threatening, Hospitalization)
  Sender: FDA-Public Use
  Company Number: NVSC2020CN002893

PATIENT
  Age: 68 Year
  Sex: Male
  Weight: 80 kg

DRUGS (23)
  1. VITAMIIN C [Concomitant]
     Active Substance: ASCORBIC ACID
     Indication: NUTRITIONAL SUPPLEMENTATION
     Dosage: UNK
     Route: 065
     Dates: start: 20191217, end: 20191217
  2. AMIODARONE HYDROCHLORIDE TE [Concomitant]
     Indication: ATRIAL FIBRILLATION
     Dosage: UNK
     Route: 065
     Dates: start: 20200107
  3. REDUCED GLUTATHIONE SODIUM [Concomitant]
     Active Substance: GLUTATHIONE
     Indication: ALANINE AMINOTRANSFERASE INCREASED
     Dosage: UNK
     Route: 065
     Dates: start: 20200110, end: 20200110
  4. FOLIC ACID. [Concomitant]
     Active Substance: FOLIC ACID
     Indication: PROPHYLAXIS
     Dosage: UNK
     Route: 065
     Dates: start: 20191211
  5. GRANISETRON HYDROCHLORIDE. [Concomitant]
     Active Substance: GRANISETRON HYDROCHLORIDE
     Indication: PROPHYLAXIS
     Dosage: UNK
     Route: 065
     Dates: start: 20191217, end: 20191217
  6. CANAKINUMAB. [Suspect]
     Active Substance: CANAKINUMAB
     Indication: NON-SMALL CELL LUNG CANCER
     Dosage: UNK
     Route: 058
     Dates: start: 20191217, end: 20191217
  7. COMPARATOR PEMETREXED [Suspect]
     Active Substance: PEMETREXED DISODIUM
     Indication: NON-SMALL CELL LUNG CANCER
     Dosage: 969 MG, Q3W
     Route: 042
     Dates: start: 20191217, end: 20191217
  8. REDUCED GLUTATHIONE SODIUM [Concomitant]
     Active Substance: GLUTATHIONE
     Indication: ASPARTATE AMINOTRANSFERASE INCREASED
  9. POTASSIUM CHLORIDE. [Concomitant]
     Active Substance: POTASSIUM CHLORIDE
     Indication: NUTRITIONAL SUPPLEMENTATION
     Dosage: UNK
     Route: 065
     Dates: start: 20191217, end: 20191217
  10. PEMBROLIZUMAB. [Suspect]
     Active Substance: PEMBROLIZUMAB
     Indication: NON-SMALL CELL LUNG CANCER
     Dosage: 200 MG, Q3W
     Route: 042
     Dates: start: 20191217, end: 20191217
  11. EUTHYROX [Concomitant]
     Active Substance: LEVOTHYROXINE SODIUM
     Indication: HYPOTHYROIDISM
     Dosage: UNK
     Route: 065
     Dates: start: 20200107
  12. ORNITHINE ASPARTATE [Concomitant]
     Active Substance: ORNITHINE ASPARTATE
     Indication: ALANINE AMINOTRANSFERASE INCREASED
     Dosage: UNK
     Route: 065
     Dates: start: 20200109
  13. COMPARATOR CARBOPLATIN [Suspect]
     Active Substance: CARBOPLATIN
     Indication: NON-SMALL CELL LUNG CANCER
     Dosage: 558 MG, Q3W
     Route: 042
     Dates: start: 20191217, end: 20191217
  14. CELEBREX [Concomitant]
     Active Substance: CELECOXIB
     Indication: PAIN IN EXTREMITY
     Dosage: UNK
     Route: 065
     Dates: start: 20180101
  15. DESLANOSIDE [Concomitant]
     Active Substance: DESLANOSIDE
     Indication: ATRIAL FIBRILLATION
     Dosage: UNK
     Route: 065
     Dates: start: 20200107, end: 20200107
  16. METOCLOPRAMIDE HYDROCHLORIDE. [Concomitant]
     Active Substance: METOCLOPRAMIDE HYDROCHLORIDE
     Indication: PROPHYLAXIS
     Dosage: UNK
     Route: 065
     Dates: start: 20191217, end: 20191217
  17. PANTOPRAZOLE SODIUM. [Concomitant]
     Active Substance: PANTOPRAZOLE SODIUM
     Indication: PROPHYLAXIS
     Dosage: UNK
     Route: 065
     Dates: start: 20191217, end: 20191217
  18. VITAMIIN C [Concomitant]
     Active Substance: ASCORBIC ACID
     Dosage: UNK
     Route: 065
     Dates: start: 20200106, end: 20200106
  19. ORNITHINE ASPARTATE [Concomitant]
     Active Substance: ORNITHINE ASPARTATE
     Indication: ASPARTATE AMINOTRANSFERASE INCREASED
  20. POTASSIUM CHLORIDE. [Concomitant]
     Active Substance: POTASSIUM CHLORIDE
     Dosage: UNK
     Route: 065
     Dates: start: 20200106
  21. PANTOPRAZOLE SODIUM. [Concomitant]
     Active Substance: PANTOPRAZOLE SODIUM
     Dosage: UNK
     Route: 065
     Dates: start: 20200106, end: 20200106
  22. ONDANSETRON HYDROCHLORIDE. [Concomitant]
     Active Substance: ONDANSETRON HYDROCHLORIDE
     Indication: PROPHYLAXIS
     Dosage: UNK
     Route: 065
     Dates: start: 20191217, end: 20191217
  23. GAMMARAAS [Concomitant]
     Indication: BLOOD ALBUMIN DECREASED
     Dosage: UNK
     Route: 065
     Dates: start: 20200107, end: 20200110

REACTIONS (1)
  - Pneumonitis [Fatal]

NARRATIVE: CASE EVENT DATE: 20200106
